FAERS Safety Report 6486830-3 (Version None)
Quarter: 2009Q4

REPORT INFORMATION
  Report Type: 
  Country: None (occurrence: None)
  Receive Date: 20091210
  Receipt Date: 20091207
  Transmission Date: 20100525
  Serious: Yes (Death, Hospitalization)
  Sender: FDA-Public Use
  Company Number: PHHO2006JP13800

PATIENT
  Sex: Male
  Weight: 48 kg

DRUGS (5)
  1. SIMULECT [Suspect]
     Indication: RENAL TRANSPLANT
     Dosage: 20 MG, ONCE/SINGLE
     Route: 042
     Dates: start: 20031001, end: 20031001
  2. SIMULECT [Suspect]
     Dosage: 20 MG, ONCE/SINGLE
     Route: 042
     Dates: start: 20031005, end: 20031005
  3. NEORAL [Suspect]
     Indication: RENAL TRANSPLANT
     Dosage: 300 MG/DAY
     Route: 048
     Dates: start: 20031004, end: 20050501
  4. PREDONINE [Suspect]
     Indication: RENAL TRANSPLANT
     Dosage: 30 MG, QD
     Route: 048
     Dates: start: 20031008, end: 20050513
  5. CELLCEPT [Suspect]
     Indication: RENAL TRANSPLANT
     Dosage: 1500 MG/DAY
     Route: 048
     Dates: start: 20031002, end: 20050401

REACTIONS (2)
  - PNEUMONIA [None]
  - SEPSIS [None]
